FAERS Safety Report 22275545 (Version 1)
Quarter: 2023Q2

REPORT INFORMATION
  Report Type: Spontaneous
  Country: US (occurrence: US)
  Receive Date: 20230502
  Receipt Date: 20230502
  Transmission Date: 20230722
  Serious: No
  Sender: FDA-Public Use
  Company Number: US-SA-2023SA131851

PATIENT
  Age: 6 Year
  Sex: Female

DRUGS (3)
  1. XENPOZYME [Suspect]
     Active Substance: OLIPUDASE ALFA-RPCP
     Indication: Niemann-Pick disease
     Dosage: 60 MG, QOW
     Route: 042
     Dates: start: 20220330
  2. BENADRYL [Concomitant]
     Active Substance: DIPHENHYDRAMINE HYDROCHLORIDE
     Dosage: 17 MG, 1X
     Route: 042
     Dates: start: 20220330, end: 20220330
  3. TYLENOL [Concomitant]
     Active Substance: ACETAMINOPHEN
     Dosage: 240 MG, 1X
     Route: 042
     Dates: start: 20220330, end: 20220330

REACTIONS (1)
  - Flushing [Recovered/Resolved]

NARRATIVE: CASE EVENT DATE: 20220412
